FAERS Safety Report 6600374-7 (Version None)
Quarter: 2010Q1

REPORT INFORMATION
  Report Type: 
  Country: None (occurrence: None)
  Receive Date: 20100224
  Receipt Date: 20100212
  Transmission Date: 20100710
  Serious: Yes (Death, Hospitalization)
  Sender: FDA-Public Use
  Company Number: GB-PFIZER INC-2010019931

PATIENT
  Sex: Male

DRUGS (5)
  1. PARACETAMOL [Suspect]
     Route: 048
  2. ACETYLSALICYLIC ACID [Suspect]
  3. PHENYTOIN [Suspect]
  4. PHENYLBUTAZONE [Suspect]
  5. PRIMIDONE [Suspect]

REACTIONS (4)
  - CARDIAC ARREST [None]
  - COMA [None]
  - LIVER INJURY [None]
  - MULTIPLE DRUG OVERDOSE [None]
